FAERS Safety Report 8838115 (Version 2)
Quarter: 2015Q3

REPORT INFORMATION
  Report Type: Report from Study
  Country: US (occurrence: US)
  Receive Date: 20121012
  Receipt Date: 20150813
  Transmission Date: 20151125
  Serious: Yes (Hospitalization)
  Sender: FDA-Public Use
  Company Number: US-ROCHE-1118507

PATIENT
  Sex: Female
  Weight: 40.37 kg

DRUGS (1)
  1. NUTROPIN AQ [Suspect]
     Active Substance: SOMATROPIN
     Indication: DWARFISM
     Dosage: INJECTION VOLUME 0.37 ML
     Route: 058
     Dates: start: 20001116

REACTIONS (5)
  - Pyrexia [Unknown]
  - Malaise [Unknown]
  - Ill-defined disorder [Unknown]
  - Lung disorder [Unknown]
  - Weight decreased [Unknown]
